FAERS Safety Report 14703533 (Version 1)
Quarter: 2018Q2

REPORT INFORMATION
  Report Type: Spontaneous
  Country: DE (occurrence: DE)
  Receive Date: 20180402
  Receipt Date: 20180402
  Transmission Date: 20180711
  Serious: Yes (Other)
  Sender: FDA-Public Use
  Company Number: DE-009507513-1712DEU012778

PATIENT
  Age: 55 Year
  Sex: Male

DRUGS (7)
  1. MIRTAZAPINE. [Suspect]
     Active Substance: MIRTAZAPINE
     Indication: SLEEP DISORDER
     Dosage: UNK
     Route: 065
     Dates: start: 201508
  2. ABILIFY MAINTENA [Suspect]
     Active Substance: ARIPIPRAZOLE
     Dosage: 400 MG, UNK
     Route: 030
     Dates: start: 20141218, end: 20151102
  3. MIRTAZAPINE. [Suspect]
     Active Substance: MIRTAZAPINE
     Dosage: 7.5 MG, QD
     Route: 065
     Dates: start: 20150805
  4. MIRTAZAPINE. [Suspect]
     Active Substance: MIRTAZAPINE
     Indication: DEPRESSION
     Dosage: 15 MG, QD (0.5 TABLET)
     Route: 065
     Dates: start: 201509, end: 201512
  5. ABILIFY MAINTENA [Suspect]
     Active Substance: ARIPIPRAZOLE
     Dosage: 400 MG, QM
     Route: 030
  6. ABILIFY MAINTENA [Suspect]
     Active Substance: ARIPIPRAZOLE
     Indication: SCHIZOPHRENIA
     Dosage: 300 MG, UNK
     Route: 030
     Dates: start: 20151202
  7. OPC-14597 [Suspect]
     Active Substance: CILOSTAZOL
     Indication: PRODUCT USED FOR UNKNOWN INDICATION
     Dosage: 10 MG, UNK
     Route: 048
     Dates: start: 201607

REACTIONS (9)
  - Paraesthesia [Unknown]
  - Disturbance in attention [Unknown]
  - Drug effect decreased [Unknown]
  - Mental disorder [Unknown]
  - Sleep disorder [Unknown]
  - Seizure [Unknown]
  - Depression [Unknown]
  - Apathy [Unknown]
  - Fatigue [Unknown]

NARRATIVE: CASE EVENT DATE: 201511
